FAERS Safety Report 17440417 (Version 1)
Quarter: 2020Q1

REPORT INFORMATION
  Report Type: Report from Study
  Country: CA (occurrence: CA)
  Receive Date: 20200220
  Receipt Date: 20200220
  Transmission Date: 20200409
  Serious: Yes (Other)
  Sender: FDA-Public Use
  Company Number: CA-PFIZER INC-2020066755

PATIENT

DRUGS (4)
  1. HEPARIN SODIUM. [Suspect]
     Active Substance: HEPARIN SODIUM
     Dosage: 20000 IU, UNK (CONTINUOUS INFUSION, STANDARD HEPARIN IN 500 ML OF A 5 PERCENT DEXTROSE SOLUTION WIT)
  2. WARFARIN [Concomitant]
     Active Substance: WARFARIN
     Indication: DEEP VEIN THROMBOSIS
     Dosage: 10 MG, UNK
  3. DEXTROSE. [Suspect]
     Active Substance: DEXTROSE
     Dosage: UNK (STANDARD HEPARIN IN 500 ML OF A 5 PERCENT DEXTROSE SOLUTION, WITH, 32 ML ADMINISTERED PER HOUR)
  4. HEPARIN SODIUM. [Suspect]
     Active Substance: HEPARIN SODIUM
     Indication: DEEP VEIN THROMBOSIS
     Dosage: 5000 IU, UNK  (STANDARD HEPARIN IN 500 ML OF A 5 PERCENT DEXTROSE SOLUTION, WITH32 ML ADMINISTERED/H
     Route: 040

REACTIONS (1)
  - Haematemesis [Unknown]
